FAERS Safety Report 6520401-5 (Version None)
Quarter: 2009Q4

REPORT INFORMATION
  Report Type: 
  Country: None (occurrence: None)
  Receive Date: 20091229
  Receipt Date: 20091214
  Transmission Date: 20100525
  Serious: Yes (Other)
  Sender: FDA-Public Use
  Company Number: US-ROCHE-668602

PATIENT
  Sex: Female
  Weight: 29.4 kg

DRUGS (3)
  1. BEVACIZUMAB [Suspect]
     Indication: EPENDYMOMA
     Dosage: 274 MG, Q2W
     Route: 042
     Dates: start: 20091016, end: 20091016
  2. BEVACIZUMAB [Suspect]
     Dosage: 274 MG, Q2W. FIRST AND LAST DOSE
     Route: 042
     Dates: start: 20091016, end: 20091016
  3. LAPATINIB [Suspect]
     Indication: EPENDYMOMA
     Dosage: 875 MG, BID. LAST DOSE
     Route: 050
     Dates: start: 20091016, end: 20091030

REACTIONS (1)
  - ALANINE AMINOTRANSFERASE INCREASED [None]
